FAERS Safety Report 16535438 (Version 17)
Quarter: 2023Q1

REPORT INFORMATION
  Report Type: Other
  Country: US (occurrence: None)
  Receive Date: 20190705
  Receipt Date: 20230112
  Transmission Date: 20230418
  Serious: Yes (Other)
  Sender: FDA-Public Use
  Company Number: US-ROCHE-2343876

PATIENT
  Age: 65 Year
  Sex: Female
  Weight: 72.640 kg

DRUGS (33)
  1. OCREVUS [Suspect]
     Active Substance: OCRELIZUMAB
     Indication: Relapsing-remitting multiple sclerosis
     Route: 042
     Dates: start: 201810, end: 202001
  2. OCREVUS [Suspect]
     Active Substance: OCRELIZUMAB
     Dosage: SECOND HALF -NOV-2018?FULL INFUSION 20-APR-2019
     Route: 042
     Dates: start: 2020, end: 2021
  3. OCREVUS [Suspect]
     Active Substance: OCRELIZUMAB
     Route: 042
     Dates: start: 201911
  4. OCREVUS [Suspect]
     Active Substance: OCRELIZUMAB
     Dosage: 08-OCT-2019
     Route: 042
     Dates: start: 20181106, end: 20181120
  5. OCREVUS [Suspect]
     Active Substance: OCRELIZUMAB
     Route: 042
     Dates: start: 201810, end: 202001
  6. OCREVUS [Suspect]
     Active Substance: OCRELIZUMAB
     Dosage: INFUSE 300MG DAY 1, THEN 300MG DAY 15
     Route: 042
  7. OCREVUS [Suspect]
     Active Substance: OCRELIZUMAB
     Dosage: QUANTITY: 2, REFILLS:1 YEAR, DATE OF TREATMENT : 10/MAR/2022,10/SEP/2021
     Route: 042
  8. LINZESS [Suspect]
     Active Substance: LINACLOTIDE
     Indication: Constipation
     Route: 065
  9. BIOTIN [Concomitant]
     Active Substance: BIOTIN
     Dosage: 30,000 MCG; ONGOING : YES
  10. VITAMIN D3 [Concomitant]
     Active Substance: CHOLECALCIFEROL
     Dosage: ONGOING : YES
  11. AMANTADINE [Concomitant]
     Active Substance: AMANTADINE
     Indication: Product used for unknown indication
     Dosage: ONGOING YES
  12. AMLODIPINE [Concomitant]
     Active Substance: AMLODIPINE BESYLATE
     Indication: Hypertension
     Dosage: ONGOING YES
  13. AMLODIPINE [Concomitant]
     Active Substance: AMLODIPINE BESYLATE
     Route: 048
     Dates: start: 2010
  14. SPIRONOLACTONE [Concomitant]
     Active Substance: SPIRONOLACTONE
     Indication: Hypertension
     Dosage: ONGOING YES
  15. CALTRATE +D3 [Concomitant]
     Indication: Product used for unknown indication
     Dosage: ONGOING YES
  16. FLEXERIL [Concomitant]
     Active Substance: CYCLOBENZAPRINE HYDROCHLORIDE
  17. PAXIL [Concomitant]
     Active Substance: PAROXETINE HYDROCHLORIDE
     Route: 048
  18. FLONASE [Concomitant]
     Active Substance: FLUTICASONE PROPIONATE
  19. SPIRIVA [Concomitant]
     Active Substance: TIOTROPIUM BROMIDE MONOHYDRATE
     Dosage: 2.5 MCG/ACT INHALER
  20. OMEPRAZOLE [Concomitant]
     Active Substance: OMEPRAZOLE
     Indication: Abdominal discomfort
     Route: 048
     Dates: start: 2010
  21. ZETIA [Concomitant]
     Active Substance: EZETIMIBE
     Indication: Blood triglycerides increased
     Route: 048
     Dates: start: 202001
  22. ACETAMINOPHEN\HYDROCODONE [Concomitant]
     Active Substance: ACETAMINOPHEN\HYDROCODONE
     Indication: Pain
     Route: 048
     Dates: start: 2017
  23. PRAVASTATIN [Concomitant]
     Active Substance: PRAVASTATIN
     Route: 048
     Dates: start: 2020
  24. NORVASC [Concomitant]
     Active Substance: AMLODIPINE BESYLATE
  25. SPIRONOLACTONE [Concomitant]
     Active Substance: SPIRONOLACTONE
  26. FISH OIL [Concomitant]
     Active Substance: FISH OIL
  27. FIBER (CALCIUM POLYCARBOPHIL) [Concomitant]
     Active Substance: CALCIUM POLYCARBOPHIL
  28. LOVAZA [Concomitant]
     Active Substance: OMEGA-3-ACID ETHYL ESTERS
  29. PRAVACHOL [Concomitant]
     Active Substance: PRAVASTATIN SODIUM
  30. ADDERALL [Concomitant]
     Active Substance: AMPHETAMINE ASPARTATE\AMPHETAMINE SULFATE\DEXTROAMPHETAMINE SACCHARATE\DEXTROAMPHETAMINE SULFATE
     Indication: Asthenia
     Dosage: AS NEEDED
     Dates: start: 202008
  31. TRILEPTAL [Concomitant]
     Active Substance: OXCARBAZEPINE
     Indication: Neuralgia
     Dosage: 1-2 TIMES PER DAY
     Route: 048
  32. OXYCODONE [Concomitant]
     Active Substance: OXYCODONE
  33. VASCEPA [Concomitant]
     Active Substance: ICOSAPENT ETHYL

REACTIONS (38)
  - Pneumothorax [Recovered/Resolved]
  - Spinal stenosis [Unknown]
  - Pulmonary fibrosis [Recovered/Resolved]
  - Influenza [Recovered/Resolved]
  - COVID-19 pneumonia [Recovered/Resolved]
  - Arthralgia [Not Recovered/Not Resolved]
  - Asthenia [Not Recovered/Not Resolved]
  - Arthralgia [Not Recovered/Not Resolved]
  - Sleep disorder [Not Recovered/Not Resolved]
  - Cough [Not Recovered/Not Resolved]
  - Gait disturbance [Recovered/Resolved]
  - Dysphagia [Recovered/Resolved]
  - Neuralgia [Not Recovered/Not Resolved]
  - Insomnia [Not Recovered/Not Resolved]
  - Urinary tract infection [Not Recovered/Not Resolved]
  - Constipation [Not Recovered/Not Resolved]
  - Mental impairment [Not Recovered/Not Resolved]
  - Visual impairment [Not Recovered/Not Resolved]
  - Confusional state [Not Recovered/Not Resolved]
  - Fatigue [Not Recovered/Not Resolved]
  - Joint swelling [Not Recovered/Not Resolved]
  - Dizziness [Not Recovered/Not Resolved]
  - Spinal osteoarthritis [Unknown]
  - Disturbance in attention [Unknown]
  - Memory impairment [Unknown]
  - Hyperglycaemia [Unknown]
  - Depression [Unknown]
  - Speech disorder [Not Recovered/Not Resolved]
  - Dyspepsia [Unknown]
  - Hyperhidrosis [Not Recovered/Not Resolved]
  - COVID-19 [Not Recovered/Not Resolved]
  - B-lymphocyte abnormalities [Unknown]
  - Weight decreased [Not Recovered/Not Resolved]
  - Platelet count increased [Recovered/Resolved]
  - Blood test abnormal [Unknown]
  - Asthenia [Recovered/Resolved]
  - Dysarthria [Recovered/Resolved]
  - Pulmonary mass [Not Recovered/Not Resolved]

NARRATIVE: CASE EVENT DATE: 20181120
